FAERS Safety Report 8839890 (Version 2)
Quarter: 2013Q4

REPORT INFORMATION
  Report Type: Report from Study
  Country: JP (occurrence: JP)
  Receive Date: 20121015
  Receipt Date: 20131104
  Transmission Date: 20140711
  Serious: Yes (Other)
  Sender: FDA-Public Use
  Company Number: JP-009507513-2011SP059273

PATIENT
  Age: 69 Year
  Sex: Male
  Weight: 75 kg

DRUGS (13)
  1. REBETOL [Suspect]
     Indication: CHRONIC HEPATITIS C
     Dosage: 400 MG, BID
     Route: 048
     Dates: start: 20100803, end: 20100816
  2. REBETOL [Suspect]
     Dosage: 400 MG, BID
     Route: 048
     Dates: start: 20110323, end: 20110405
  3. REBETOL [Suspect]
     Dosage: 400 MG, BID
     Route: 048
     Dates: start: 20100818, end: 20101201
  4. PEGINTRON [Suspect]
     Indication: CHRONIC HEPATITIS C
     Dosage: 100 MICROGRAM, QW
     Route: 058
     Dates: start: 20100818, end: 20101201
  5. FERON [Suspect]
     Indication: CHRONIC HEPATITIS C
     Dosage: 3 MILLION IU, BID
     Route: 041
     Dates: start: 20100803, end: 20100816
  6. FERON [Suspect]
     Dosage: 3 MILLION IU, BID
     Dates: start: 20110323, end: 20110405
  7. PEGASYS [Suspect]
     Indication: CHRONIC HEPATITIS C
     Dosage: 180 MICROGRAM, QW
     Route: 030
     Dates: start: 20101208, end: 20110316
  8. PEGASYS [Suspect]
     Dosage: 180 MICROGRAM, QW
     Route: 030
     Dates: start: 20110413, end: 20120208
  9. COPEGUS [Suspect]
     Indication: CHRONIC HEPATITIS C
     Dosage: 800 MG, QD
     Route: 048
     Dates: start: 20101208, end: 20110322
  10. COPEGUS [Suspect]
     Dosage: 800 MG, QD
     Route: 048
     Dates: start: 20110413, end: 20120208
  11. URSO [Concomitant]
     Indication: CHRONIC HEPATITIS C
     Dosage: 400 MG, QD
     Route: 048
     Dates: end: 20100802
  12. AMMONIUM GLYCYRRHIZATE (+) CYSTEINE HYDROCHLORIDE (+) GLYCINE [Concomitant]
     Indication: CHRONIC HEPATITIS C
     Dosage: 60 ML, TIW
     Route: 051
     Dates: end: 20100720
  13. NIFEDIPINE [Concomitant]
     Indication: HYPERTENSION
     Dosage: 20 MG, QD

REACTIONS (5)
  - White blood cell count decreased [Recovering/Resolving]
  - Anaemia [Not Recovered/Not Resolved]
  - Platelet count decreased [Recovered/Resolved]
  - Pyrexia [Recovering/Resolving]
  - Pyrexia [Recovered/Resolved]
